FAERS Safety Report 20728569 (Version 1)
Quarter: 2022Q2

REPORT INFORMATION
  Report Type: Report from Study
  Country: FR (occurrence: FR)
  Receive Date: 20220420
  Receipt Date: 20220420
  Transmission Date: 20220721
  Serious: Yes (Hospitalization, Other)
  Sender: FDA-Public Use
  Company Number: FR-BRISTOL-MYERS SQUIBB COMPANY-BMS-2018-050079

PATIENT
  Age: 63 Year
  Sex: Female

DRUGS (1)
  1. NIVOLUMAB [Suspect]
     Active Substance: NIVOLUMAB
     Indication: Renal cell carcinoma
     Dosage: 189 MG, Q2WK (3 MG/ KG)
     Route: 042
     Dates: start: 20180309, end: 20190426

REACTIONS (7)
  - Back pain [Not Recovered/Not Resolved]
  - Hepatic cytolysis [Recovering/Resolving]
  - Paraesthesia [Not Recovered/Not Resolved]
  - Seborrhoeic keratosis [Recovered/Resolved]
  - Rash papular [Recovered/Resolved]
  - Osteoporotic fracture [Unknown]
  - Off label use [Unknown]

NARRATIVE: CASE EVENT DATE: 20180328
